FAERS Safety Report 9050496 (Version 1)
Quarter: 2013Q1

REPORT INFORMATION
  Report Type: Report from Study
  Country: GB (occurrence: GB)
  Receive Date: 20130205
  Receipt Date: 20130205
  Transmission Date: 20140127
  Serious: Yes (Hospitalization)
  Sender: FDA-Public Use
  Company Number: GB-JNJFOC-20130117289

PATIENT
  Age: 67 None
  Sex: Female
  Weight: 98 kg

DRUGS (10)
  1. USTEKINUMAB [Suspect]
     Indication: PSORIASIS
     Route: 058
     Dates: start: 20110328
  2. ATORVASTATIN [Concomitant]
  3. BISOPROLOL [Concomitant]
  4. CLOPIDOGREL [Concomitant]
  5. GTN [Concomitant]
  6. PARACETAMOL [Concomitant]
  7. TELMISARTAN [Concomitant]
  8. LEVOTHYROXINE [Concomitant]
  9. CLOBETASOL PROPIONATE CREAM [Concomitant]
  10. CLARELUX [Concomitant]

REACTIONS (1)
  - Sepsis [Recovered/Resolved]
